FAERS Safety Report 10510685 (Version 1)
Quarter: 2014Q3

REPORT INFORMATION
  Report Type: Spontaneous
  Country: US (occurrence: None)
  Receive Date: 20140924
  Receipt Date: 20140924
  Transmission Date: 20150326
  Serious: Yes (Other)
  Sender: FDA-Public Use
  Company Number: 2013STPI000336

PATIENT
  Age: 85 Year
  Sex: Female
  Weight: 54.89 kg

DRUGS (1)
  1. MATULANE [Suspect]
     Active Substance: PROCARBAZINE HYDROCHLORIDE
     Indication: LYMPHOMA
     Route: 048
     Dates: start: 201202

REACTIONS (1)
  - Disease progression [None]

NARRATIVE: CASE EVENT DATE: 2013
